FAERS Safety Report 17083281 (Version 1)
Quarter: 2019Q4

REPORT INFORMATION
  Report Type: Spontaneous
  Country: US (occurrence: US)
  Receive Date: 20191127
  Receipt Date: 20191127
  Transmission Date: 20200122
  Serious: No
  Sender: FDA-Public Use
  Company Number: US-SA-2019SA329486

PATIENT
  Age: 60 Year
  Sex: Female
  Weight: 65.31 kg

DRUGS (1)
  1. DUPIXENT [Suspect]
     Active Substance: DUPILUMAB
     Dosage: 300 MG, QOW
     Route: 058
     Dates: start: 20191023

REACTIONS (2)
  - Erythema [Recovered/Resolved]
  - Skin ulcer haemorrhage [Recovered/Resolved]
